FAERS Safety Report 6003086-6 (Version None)
Quarter: 2008Q4

REPORT INFORMATION
  Report Type: 
  Country: None (occurrence: None)
  Receive Date: 20081215
  Receipt Date: 20081215
  Transmission Date: 20090506
  Serious: Yes (Other)
  Sender: FDA-Public Use
  Company Number: None

PATIENT
  Age: 37 Year
  Sex: Female
  Weight: 54.4316 kg

DRUGS (1)
  1. ABILIFY [Suspect]
     Indication: BIPOLAR DISORDER
     Dosage: 5MG 1XDAY PO
     Route: 048
     Dates: start: 20081207, end: 20081208

REACTIONS (6)
  - COLD SWEAT [None]
  - FEELING ABNORMAL [None]
  - IMPAIRED DRIVING ABILITY [None]
  - PALPITATIONS [None]
  - PANIC ATTACK [None]
  - VOMITING [None]
